FAERS Safety Report 8259125-5 (Version None)
Quarter: 2012Q2

REPORT INFORMATION
  Report Type: 
  Country: None (occurrence: None)
  Receive Date: 20120404
  Receipt Date: 20120328
  Transmission Date: 20120825
  Serious: Yes (Other)
  Sender: FDA-Public Use
  Company Number: GB-JNJFOC-20120400333

PATIENT
  Sex: Female

DRUGS (2)
  1. SUDAFED 12 HOUR [Suspect]
     Route: 048
     Dates: start: 20120327
  2. SUDAFED 12 HOUR [Suspect]
     Indication: SINUS DISORDER
     Dosage: 2 TABLETS 26-MAR-12 ONE 4PM, ONE 11PM, THREE 27-MAR-12, ONE IN MORNING, ONE MIDDAY ONE IN EVENING
     Route: 048
     Dates: start: 20120326

REACTIONS (4)
  - VIITH NERVE PARALYSIS [None]
  - MUSCULOSKELETAL STIFFNESS [None]
  - INSOMNIA [None]
  - HYPOAESTHESIA [None]
